FAERS Safety Report 4579492-3 (Version None)
Quarter: 2005Q1

REPORT INFORMATION
  Report Type: 
  Country: None (occurrence: None)
  Receive Date: 20050209
  Receipt Date: 20050131
  Transmission Date: 20050727
  Serious: Yes (Hospitalization)
  Sender: FDA-Public Use
  Company Number: 2005024200

PATIENT
  Age: 62 Year
  Sex: Male
  Weight: 128 kg

DRUGS (5)
  1. ALDACTONE [Suspect]
     Dosage: 50 MG (50 MG EVERY DAY) ORAL
     Route: 048
  2. FUROSEMIDE [Suspect]
     Dosage: 1 DOSE FORM (EVERY DAY) ORAL
     Route: 048
  3. ESOMEPRAZOLE MAGNESIUM(ESOMEPRAZOLE MAGNESIUM) [Concomitant]
  4. METFORMIN HCL [Concomitant]
  5. BUFLOMEDIL (BUFLOMEDIL) [Concomitant]

REACTIONS (2)
  - BONE MARROW MYELOGRAM ABNORMAL [None]
  - PANCYTOPENIA [None]
